FAERS Safety Report 12084558 (Version 1)
Quarter: 2016Q1

REPORT INFORMATION
  Report Type: Spontaneous
  Country: FR (occurrence: FR)
  Receive Date: 20160217
  Receipt Date: 20160217
  Transmission Date: 20160526
  Serious: Yes (Other)
  Sender: FDA-Public Use
  Company Number: FR-009507513-1507FRA006274

PATIENT
  Age: 78 Year
  Sex: Male

DRUGS (14)
  1. PLAVIX [Suspect]
     Active Substance: CLOPIDOGREL BISULFATE
     Indication: PRODUCT USED FOR UNKNOWN INDICATION
     Dosage: 75 MG, QD
     Route: 048
  2. EXFORGE [Suspect]
     Active Substance: AMLODIPINE BESYLATE\VALSARTAN
     Indication: PRODUCT USED FOR UNKNOWN INDICATION
     Dosage: 1 DF, QD
     Route: 048
  3. SPASFON-LYOC [Suspect]
     Active Substance: PHLOROGLUCINOL
     Indication: PRODUCT USED FOR UNKNOWN INDICATION
     Dosage: 160 MG, TID
     Route: 048
     Dates: start: 20121027, end: 20121028
  4. DOLIPRANE [Suspect]
     Active Substance: ACETAMINOPHEN
     Indication: PRODUCT USED FOR UNKNOWN INDICATION
     Dosage: 1 G, TID
     Route: 048
     Dates: start: 20121027
  5. IXPRIM (ACETAMINOPHEN (+) TRAMADOL HYDROCHLORIDE) [Suspect]
     Active Substance: ACETAMINOPHEN\TRAMADOL
     Indication: PRODUCT USED FOR UNKNOWN INDICATION
     Dosage: UNK
     Dates: end: 201510
  6. CARDENSIEL [Suspect]
     Active Substance: BISOPROLOL FUMARATE
     Indication: PRODUCT USED FOR UNKNOWN INDICATION
     Dosage: 1.25 MG, BID
     Route: 048
  7. VASTEN [Suspect]
     Active Substance: PRAVASTATIN SODIUM
     Indication: PRODUCT USED FOR UNKNOWN INDICATION
     Dosage: 20 MG, QD
     Route: 048
  8. CONTRAMAL [Suspect]
     Active Substance: TRAMADOL HYDROCHLORIDE
     Indication: PRODUCT USED FOR UNKNOWN INDICATION
     Dosage: 250 MG, QD
     Route: 048
     Dates: start: 20121029
  9. GLUCOR [Suspect]
     Active Substance: ACARBOSE
     Indication: PRODUCT USED FOR UNKNOWN INDICATION
     Dosage: 50 MG, TID
     Route: 048
  10. GLUCOPHAGE [Suspect]
     Active Substance: METFORMIN HYDROCHLORIDE
     Indication: PRODUCT USED FOR UNKNOWN INDICATION
     Dosage: 850 MG, BID
     Route: 048
     Dates: end: 20121102
  11. XELEVIA [Suspect]
     Active Substance: SITAGLIPTIN PHOSPHATE
     Indication: PRODUCT USED FOR UNKNOWN INDICATION
     Dosage: 100 MG, QD
     Route: 048
  12. HYPERIUM [Suspect]
     Active Substance: RILMENIDINE PHOSPHATE
     Indication: PRODUCT USED FOR UNKNOWN INDICATION
     Dosage: 1 MG, QD
     Route: 048
  13. CORVASAL (MOLSIDOMINE) [Suspect]
     Active Substance: MOLSIDOMINE
     Indication: PRODUCT USED FOR UNKNOWN INDICATION
     Dosage: 2 MG, TID
     Route: 048
  14. CORTANCYL [Suspect]
     Active Substance: PREDNISONE
     Indication: PRODUCT USED FOR UNKNOWN INDICATION
     Dosage: 20 MG, QD
     Route: 048
     Dates: start: 20121030

REACTIONS (2)
  - Mixed liver injury [Unknown]
  - Hepatic steatosis [Unknown]

NARRATIVE: CASE EVENT DATE: 20121102
